FAERS Safety Report 21599212 (Version 3)
Quarter: 2022Q4

REPORT INFORMATION
  Report Type: Spontaneous
  Country: ES (occurrence: ES)
  Receive Date: 20221115
  Receipt Date: 20221129
  Transmission Date: 20230113
  Serious: Yes (Death, Other)
  Sender: FDA-Public Use
  Company Number: ES-ALXN-A202209927

PATIENT
  Age: 70 Year
  Sex: Male
  Weight: 70 kg

DRUGS (10)
  1. ULTOMIRIS [Suspect]
     Active Substance: RAVULIZUMAB-CWVZ
     Dosage: 3300 MG, UNK
     Route: 042
     Dates: start: 20220819, end: 20221014
  2. ULTOMIRIS [Suspect]
     Active Substance: RAVULIZUMAB-CWVZ
     Dosage: 2700 MG, UNK
     Route: 042
     Dates: start: 20220805
  3. ULTOMIRIS [Suspect]
     Active Substance: RAVULIZUMAB-CWVZ
     Indication: Paroxysmal nocturnal haemoglobinuria
     Dosage: 3000 MG, UNK
     Route: 065
  4. EPO                                /00909301/ [Concomitant]
     Indication: Neoplasm
     Dosage: 40000 UNK, QW
     Route: 065
     Dates: start: 20220819
  5. HYDROCORTISONE [Concomitant]
     Active Substance: HYDROCORTISONE
     Indication: Pituitary tumour benign
     Dosage: 1 DF, QD
     Route: 065
     Dates: start: 20160201
  6. HYDROCORTISONE [Concomitant]
     Active Substance: HYDROCORTISONE
     Indication: Growth hormone deficiency
  7. MASTICAL D [Concomitant]
     Indication: Product used for unknown indication
     Dosage: 1 DF, QD
     Route: 065
     Dates: start: 20170602
  8. TESTOSTERONE [Concomitant]
     Active Substance: TESTOSTERONE
     Indication: Pituitary tumour benign
     Dosage: 250 MG, (EVERY 28 DAYS)
     Route: 030
     Dates: start: 20151013
  9. TESTOSTERONE [Concomitant]
     Active Substance: TESTOSTERONE
     Indication: Growth hormone deficiency
  10. TESTOSTERONE [Concomitant]
     Active Substance: TESTOSTERONE
     Indication: Neoplasm

REACTIONS (2)
  - Atrioventricular block complete [Fatal]
  - Product preparation issue [Unknown]
